FAERS Safety Report 10680991 (Version 13)
Quarter: 2018Q4

REPORT INFORMATION
  Report Type: Spontaneous
  Country: FR (occurrence: FR)
  Receive Date: 20141229
  Receipt Date: 20181220
  Transmission Date: 20190204
  Serious: Yes (Life-Threatening, Hospitalization, Other)
  Sender: FDA-Public Use
  Company Number: FR-009507513-1412FRA010869

PATIENT
  Age: 55 Year
  Sex: Female
  Weight: 72 kg

DRUGS (9)
  1. DOLIPRANE [Concomitant]
     Active Substance: ACETAMINOPHEN
     Dosage: TOTAL DAILY DOSE: 3 TABLETS DAILY
     Route: 048
  2. AERIUS (DESLORATADINE) [Concomitant]
     Active Substance: DESLORATADINE
     Dosage: 1 TABLET EVENING
     Route: 048
  3. INNOVAIR [Concomitant]
     Active Substance: BECLOMETHASONE DIPROPIONATE\FORMOTEROL
     Indication: ASTHMA
  4. ADEPAL [Concomitant]
     Active Substance: ETHINYL ESTRADIOL\LEVONORGESTREL
     Indication: CONTRACEPTION
     Dosage: 1 DF, QD
     Route: 048
  5. STROMECTOL [Suspect]
     Active Substance: IVERMECTIN
     Dosage: 5 TABLETS, EVERY TWO WEEKS, FIRST COURSE
     Route: 048
     Dates: start: 20140331, end: 20140331
  6. STROMECTOL [Suspect]
     Active Substance: IVERMECTIN
     Indication: ACARODERMATITIS
     Dosage: 5 TABLETS, EVERY  2 WEEKS, FIRST COURSE
     Route: 048
     Dates: start: 20140317, end: 20140401
  7. STROMECTOL [Suspect]
     Active Substance: IVERMECTIN
     Dosage: 5 TABLETS, EVERY TWO WEEKS
     Route: 048
     Dates: start: 20140402, end: 20140402
  8. VENTOLIN [Concomitant]
     Active Substance: ALBUTEROL SULFATE
  9. INNOVAIR [Concomitant]
     Active Substance: BECLOMETHASONE DIPROPIONATE\FORMOTEROL
     Indication: CHRONIC OBSTRUCTIVE PULMONARY DISEASE
     Dosage: 100/6 MIRCO-G/DOSE, SOLUTION FOR INHALATION, MORNING AND EVENING
     Route: 055
     Dates: start: 2009

REACTIONS (21)
  - Vocal cord disorder [Unknown]
  - Loss of personal independence in daily activities [Unknown]
  - Respiratory disorder [Unknown]
  - Respiratory distress [Recovered/Resolved]
  - Oedema peripheral [Unknown]
  - Status asthmaticus [Recovered/Resolved]
  - Arthropathy [Unknown]
  - Malaise [Unknown]
  - Pneumonia [Recovered/Resolved]
  - Fatigue [Unknown]
  - Dysphonia [Unknown]
  - Gastrointestinal disorder [Unknown]
  - Gastrointestinal disorder [Unknown]
  - Chest discomfort [Unknown]
  - Sensory loss [Unknown]
  - Post procedural haematoma [Unknown]
  - Neuropathy peripheral [Unknown]
  - Dyspnoea [Unknown]
  - Mental disorder [Unknown]
  - Anaphylactic shock [Recovered/Resolved]
  - Pain in extremity [Unknown]

NARRATIVE: CASE EVENT DATE: 2014
